FAERS Safety Report 19731624 (Version 1)
Quarter: 2021Q3

REPORT INFORMATION
  Report Type: Report from Study
  Country: FR (occurrence: FR)
  Receive Date: 20210820
  Receipt Date: 20210820
  Transmission Date: 20211014
  Serious: Yes (Hospitalization)
  Sender: FDA-Public Use
  Company Number: FR-EMD SERONO-9165273

PATIENT
  Age: 71 Year
  Sex: Male
  Weight: 79 kg

DRUGS (8)
  1. CISPLATIN. [Suspect]
     Active Substance: CISPLATIN
     Indication: ADENOCARCINOMA
     Route: 042
     Dates: start: 20200113, end: 20200227
  2. BINTRAFUSP ALFA (M7824) [Suspect]
     Active Substance: BINTRAFUSP ALFA
     Indication: ADENOCARCINOMA
     Route: 042
     Dates: start: 20200113, end: 20200427
  3. PEMETREXED. [Suspect]
     Active Substance: PEMETREXED
     Indication: ADENOCARCINOMA
     Route: 042
     Dates: start: 20200113, end: 20200427
  4. FINASTERIDE. [Concomitant]
     Active Substance: FINASTERIDE
     Indication: PROSTATOMEGALY
     Route: 048
     Dates: end: 202006
  5. BINTRAFUSP ALFA (M7824) [Suspect]
     Active Substance: BINTRAFUSP ALFA
     Route: 042
     Dates: start: 20200611
  6. SPECIAFOLDINE [Concomitant]
     Active Substance: FOLIC ACID
     Indication: PROPHYLAXIS
     Route: 048
     Dates: start: 20191224
  7. PEMETREXED. [Suspect]
     Active Substance: PEMETREXED
     Route: 042
     Dates: start: 20200611
  8. VITAMIN B12 [Concomitant]
     Active Substance: CYANOCOBALAMIN
     Indication: PROPHYLAXIS
     Dosage: 1 VIAL
     Route: 048
     Dates: start: 20191227

REACTIONS (1)
  - Hypothalamo-pituitary disorder [Recovered/Resolved]

NARRATIVE: CASE EVENT DATE: 20200522
